FAERS Safety Report 11858383 (Version 1)
Quarter: 2015Q4

REPORT INFORMATION
  Report Type: Spontaneous
  Country: FR (occurrence: FR)
  Receive Date: 20151222
  Receipt Date: 20151222
  Transmission Date: 20160305
  Serious: Yes (Death, Life-Threatening)
  Sender: FDA-Public Use
  Company Number: FR-ELI_LILLY_AND_COMPANY-FR201504007940

PATIENT
  Age: 59 Year
  Sex: Female

DRUGS (12)
  1. XGEVA [Concomitant]
     Active Substance: DENOSUMAB
  2. NOVOMIX [Concomitant]
     Active Substance: INSULIN ASPART
  3. NOVORAPID [Concomitant]
     Active Substance: INSULIN ASPART
  4. GEMZAR [Suspect]
     Active Substance: GEMCITABINE HYDROCHLORIDE
     Indication: BREAST CANCER
     Dosage: 2000 MG, CYCLICAL
     Route: 042
     Dates: start: 20150108, end: 20150115
  5. EUCREAS [Concomitant]
     Active Substance: METFORMIN HYDROCHLORIDE\VILDAGLIPTIN
  6. NOVONORM [Concomitant]
     Active Substance: REPAGLINIDE
  7. FASLODEX [Concomitant]
     Active Substance: FULVESTRANT
     Dosage: UNK, UNKNOWN
     Route: 065
  8. LEVOTHYROXINE. [Concomitant]
     Active Substance: LEVOTHYROXINE
  9. POLARAMINE [Concomitant]
     Active Substance: DEXCHLORPHENIRAMINE MALEATE
  10. INEXIUM                            /01479302/ [Concomitant]
     Active Substance: ESOMEPRAZOLE MAGNESIUM
  11. NOCTAMIDE [Concomitant]
     Active Substance: LORMETAZEPAM
  12. DEROXAT [Concomitant]
     Active Substance: PAROXETINE HYDROCHLORIDE

REACTIONS (3)
  - Death [Fatal]
  - Conjunctival haemorrhage [Recovering/Resolving]
  - Thrombocytopenia [Recovering/Resolving]

NARRATIVE: CASE EVENT DATE: 20150115
